FAERS Safety Report 23411041 (Version 1)
Quarter: 2024Q1

REPORT INFORMATION
  Report Type: Spontaneous
  Country: US (occurrence: None)
  Receive Date: 20240117
  Receipt Date: 20240117
  Transmission Date: 20240410
  Serious: Yes (Hospitalization)
  Sender: FDA-Public Use
  Company Number: None

PATIENT
  Age: 73 Year
  Sex: Female
  Weight: 52.2 kg

DRUGS (4)
  1. FLUOROURACIL [Suspect]
     Active Substance: FLUOROURACIL
     Dates: end: 20231230
  2. IRINOTECAN [Suspect]
     Active Substance: IRINOTECAN
     Dates: end: 20231228
  3. LEUCOVORIN CALCIUM [Suspect]
     Active Substance: LEUCOVORIN CALCIUM
     Dates: end: 20231228
  4. LEUCOVORIN CALCIUM [Suspect]
     Active Substance: LEUCOVORIN CALCIUM

REACTIONS (3)
  - Pneumococcal sepsis [None]
  - Respiratory syncytial virus test positive [None]
  - Pneumonia [None]

NARRATIVE: CASE EVENT DATE: 20240105
